FAERS Safety Report 9469735 (Version 1)
Quarter: 2013Q3

REPORT INFORMATION
  Report Type: Spontaneous
  Country: US (occurrence: US)
  Receive Date: 20130822
  Receipt Date: 20130822
  Transmission Date: 20140515
  Serious: Yes (Hospitalization)
  Sender: FDA-Public Use
  Company Number: PHEH2013US017655

PATIENT
  Sex: Female

DRUGS (4)
  1. EXFORGE HCT [Suspect]
     Dosage: 320/10/25 MG, UNK
  2. EXFORGE HCT [Suspect]
     Dosage: 320/10/25 MG, UNK
  3. ORENCIA [Suspect]
  4. LEFLUNOMIDE [Concomitant]
     Dosage: 20 MG, UNK

REACTIONS (10)
  - Bronchitis [Unknown]
  - Decreased appetite [Unknown]
  - Hypersomnia [Unknown]
  - Weight decreased [Unknown]
  - Vomiting [Unknown]
  - Sepsis [Unknown]
  - Atypical pneumonia [Unknown]
  - Blood sodium decreased [Unknown]
  - Blood potassium decreased [Unknown]
  - Malaise [Unknown]
